FAERS Safety Report 8343599-5 (Version None)
Quarter: 2012Q2

REPORT INFORMATION
  Report Type: 
  Country: None (occurrence: None)
  Receive Date: 20120508
  Receipt Date: 20120501
  Transmission Date: 20120825
  Serious: Yes (Hospitalization, Other)
  Sender: FDA-Public Use
  Company Number: US-PFIZER INC-2012073419

PATIENT
  Sex: Male
  Weight: 97.506 kg

DRUGS (12)
  1. ACCURETIC [Suspect]
     Indication: HYPERTENSION
     Dosage: 20/12.5MG, DAILY
     Route: 048
  2. VITAMIN E [Concomitant]
     Dosage: UNK
  3. TIAZAC [Concomitant]
     Indication: HYPERTENSION
     Dosage: 240 MG, DAILY
  4. LIPITOR [Suspect]
     Indication: BLOOD CHOLESTEROL INCREASED
     Dosage: 20 MG, DAILY
     Route: 048
  5. NEXIUM [Suspect]
     Indication: DYSPEPSIA
     Dosage: UNK
  6. VITAMIN D [Concomitant]
     Dosage: UNK
  7. NEXIUM [Suspect]
     Dosage: 40 MG, DAILY
  8. CHONDROITIN/GLUCOSAMINE [Concomitant]
     Dosage: UNK
  9. FISH OIL [Concomitant]
     Dosage: UNK
  10. ACETYLSALICYLIC ACID [Concomitant]
     Dosage: UNK
  11. GARLIC [Concomitant]
     Dosage: UNK
  12. VITAMIN C [Concomitant]
     Dosage: UNK

REACTIONS (8)
  - BLADDER NEOPLASM [None]
  - HYPERCHLORHYDRIA [None]
  - GASTROINTESTINAL STROMAL TUMOUR [None]
  - ANAEMIA [None]
  - CHEST DISCOMFORT [None]
  - PARAESTHESIA [None]
  - HAEMORRHAGE [None]
  - DYSPEPSIA [None]
